FAERS Safety Report 16781605 (Version 1)
Quarter: 2019Q3

REPORT INFORMATION
  Report Type: Spontaneous
  Country: CN (occurrence: CN)
  Receive Date: 20190906
  Receipt Date: 20190906
  Transmission Date: 20191005
  Serious: Yes (Life-Threatening, Other)
  Sender: FDA-Public Use
  Company Number: CN-PFIZER INC-2019384853

PATIENT
  Age: 83 Year
  Sex: Female
  Weight: 36 kg

DRUGS (2)
  1. TAZOCIN [Suspect]
     Active Substance: PIPERACILLIN SODIUM\TAZOBACTAM SODIUM
     Indication: LUNG INFECTION
     Dosage: 4.5 G, 3X/DAY (Q8H)
     Route: 041
     Dates: start: 20190827, end: 20190827
  2. SODIUM CHLORIDE. [Concomitant]
     Active Substance: SODIUM CHLORIDE
     Indication: LUNG INFECTION
     Dosage: 100 ML, 3X/DAY
     Route: 041
     Dates: start: 20190827, end: 20190827

REACTIONS (16)
  - Hypersensitivity [Recovering/Resolving]
  - White blood cell count decreased [Recovering/Resolving]
  - Blood pressure increased [Recovering/Resolving]
  - Oxygen saturation decreased [Recovered/Resolved]
  - Respiratory rate increased [Unknown]
  - Lung infection [Unknown]
  - Rales [Recovering/Resolving]
  - Lung disorder [Unknown]
  - Condition aggravated [Recovering/Resolving]
  - Body temperature increased [Recovered/Resolved]
  - Neutrophil count decreased [Recovering/Resolving]
  - Condition aggravated [Unknown]
  - Chills [Unknown]
  - Heart rate increased [Unknown]
  - Chest discomfort [Recovering/Resolving]
  - Cough [Recovering/Resolving]

NARRATIVE: CASE EVENT DATE: 201908
